FAERS Safety Report 9202774 (Version 1)
Quarter: 2013Q2

REPORT INFORMATION
  Report Type: Spontaneous
  Country: NL (occurrence: NL)
  Receive Date: 20130401
  Receipt Date: 20130401
  Transmission Date: 20140414
  Serious: Yes (Death)
  Sender: FDA-Public Use
  Company Number: NL-BAXTER-2013BAX010891

PATIENT
  Sex: Female

DRUGS (2)
  1. DIANEAL PD4 GLUCOSE 1,36 % / 13,6 MG/ML [Suspect]
     Indication: RENAL FAILURE
     Route: 033
     Dates: end: 20130319
  2. EXTRANEAL [Suspect]
     Indication: RENAL FAILURE
     Route: 033
     Dates: end: 20130319

REACTIONS (1)
  - Plasma cell myeloma [Fatal]
